FAERS Safety Report 15175576 (Version 1)
Quarter: 2018Q3

REPORT INFORMATION
  Report Type: Report from Study
  Country: US (occurrence: US)
  Receive Date: 20180720
  Receipt Date: 20180720
  Transmission Date: 20181010
  Serious: No
  Sender: FDA-Public Use
  Company Number: US-AMGEN-USASL2018066337

PATIENT
  Sex: Female

DRUGS (2)
  1. REPATHA [Suspect]
     Active Substance: EVOLOCUMAB
     Indication: BLOOD CHOLESTEROL INCREASED
     Dosage: 420 MG, QMO
     Route: 065
  2. REPATHA [Suspect]
     Active Substance: EVOLOCUMAB
     Indication: HYPERCHOLESTEROLAEMIA

REACTIONS (9)
  - Low density lipoprotein increased [Unknown]
  - Headache [Unknown]
  - Blood glucose increased [Unknown]
  - Rhinorrhoea [Unknown]
  - Urinary tract infection [Unknown]
  - Injection site pain [Unknown]
  - Sinus disorder [Unknown]
  - Nasal congestion [Unknown]
  - Injection site swelling [Unknown]
